FAERS Safety Report 24668894 (Version 1)
Quarter: 2024Q4

REPORT INFORMATION
  Report Type: Spontaneous
  Country: US (occurrence: US)
  Receive Date: 20241127
  Receipt Date: 20241127
  Transmission Date: 20250115
  Serious: No
  Sender: CELLTRION
  Company Number: US-CELLTRION INC.-2024US020731

PATIENT

DRUGS (1)
  1. YUFLYMA [Suspect]
     Active Substance: ADALIMUMAB-AATY
     Indication: Proctitis ulcerative
     Dosage: 160 MG (2 PENS) UNDER THE SKIN ON DAY 1, THEN INJECT 80 MG UNDER THE SKIN ON DAY 15
     Route: 058
     Dates: start: 20240815

REACTIONS (3)
  - Device malfunction [Recovered/Resolved]
  - Exposure via skin contact [Recovered/Resolved]
  - Accidental exposure to product [Recovered/Resolved]

NARRATIVE: CASE EVENT DATE: 20240815
